FAERS Safety Report 16777534 (Version 1)
Quarter: 2019Q3

REPORT INFORMATION
  Report Type: Spontaneous
  Country: FR (occurrence: FR)
  Receive Date: 20190905
  Receipt Date: 20190905
  Transmission Date: 20191005
  Serious: Yes (Hospitalization)
  Sender: FDA-Public Use
  Company Number: FR-BAUSCH-BL-2019-025370

PATIENT
  Age: 79 Year
  Sex: Male
  Weight: 65.4 kg

DRUGS (6)
  1. ESOMEPRAZOLE. [Suspect]
     Active Substance: ESOMEPRAZOLE MAGNESIUM
     Indication: PRODUCT USED FOR UNKNOWN INDICATION
     Route: 048
     Dates: start: 20190723, end: 20190814
  2. CEFTAROLINE FOSAMIL [Suspect]
     Active Substance: CEFTAROLINE FOSAMIL
     Indication: ANTIBIOTIC PROPHYLAXIS
     Route: 042
     Dates: start: 20190704, end: 20190730
  3. PREDNISOLONE. [Suspect]
     Active Substance: PREDNISOLONE
     Indication: ACUTE RESPIRATORY FAILURE
     Route: 048
     Dates: start: 20190723, end: 20190812
  4. CORTANCYL [Concomitant]
     Active Substance: PREDNISONE
     Indication: ACUTE RESPIRATORY FAILURE
     Route: 048
     Dates: start: 20190707, end: 20190712
  5. METHYLPREDNISOLONE. [Concomitant]
     Active Substance: METHYLPREDNISOLONE
     Indication: ACUTE RESPIRATORY FAILURE
     Route: 042
     Dates: start: 20190712, end: 20190713
  6. DAPTOMYCINE [Suspect]
     Active Substance: DAPTOMYCIN
     Indication: ANTIBIOTIC PROPHYLAXIS
     Route: 042
     Dates: start: 20190704, end: 20190730

REACTIONS (1)
  - Thrombocytopenia [Not Recovered/Not Resolved]

NARRATIVE: CASE EVENT DATE: 20190729
